FAERS Safety Report 15631024 (Version 3)
Quarter: 2019Q1

REPORT INFORMATION
  Report Type: Report from Study
  Country: US (occurrence: US)
  Receive Date: 20181119
  Receipt Date: 20190118
  Transmission Date: 20190417
  Serious: Yes (Death, Hospitalization, Other)
  Sender: FDA-Public Use
  Company Number: US-BIOGEN-2018BI00659236

PATIENT
  Age: 46 Year
  Sex: Male

DRUGS (1)
  1. TYSABRI [Suspect]
     Active Substance: NATALIZUMAB
     Indication: MULTIPLE SCLEROSIS
     Route: 065
     Dates: start: 20170222, end: 20180725

REACTIONS (8)
  - Cardiac pacemaker insertion [Unknown]
  - Hypotension [Unknown]
  - Weight decreased [Unknown]
  - Pneumonia aspiration [Unknown]
  - Bradycardia [Unknown]
  - Multiple sclerosis relapse [Unknown]
  - Encephalopathy [Unknown]
  - Death [Fatal]

NARRATIVE: CASE EVENT DATE: 201809
